FAERS Safety Report 12507887 (Version 1)
Quarter: 2016Q2

REPORT INFORMATION
  Report Type: Spontaneous
  Country: US (occurrence: None)
  Receive Date: 20160628
  Receipt Date: 20160628
  Transmission Date: 20160815
  Serious: Yes (Other)
  Sender: FDA-Public Use
  Company Number: None

PATIENT
  Age: 30 Year
  Sex: Female
  Weight: 76.2 kg

DRUGS (2)
  1. MIRENA [Suspect]
     Active Substance: LEVONORGESTREL
     Dates: start: 20140821
  2. WOMENS MULTIVITAMINS [Concomitant]

REACTIONS (31)
  - Rash generalised [None]
  - Skin odour abnormal [None]
  - Apathy [None]
  - Palpitations [None]
  - Hypoaesthesia [None]
  - Muscle tightness [None]
  - Weight increased [None]
  - Abdominal pain [None]
  - Chest pain [None]
  - Lethargy [None]
  - Skin disorder [None]
  - Fatigue [None]
  - Libido decreased [None]
  - Ocular hyperaemia [None]
  - Onychoclasis [None]
  - Bruxism [None]
  - Disturbance in attention [None]
  - Feeling of despair [None]
  - Irritability [None]
  - Mood swings [None]
  - Procedural pain [None]
  - Abdominal discomfort [None]
  - Asthenia [None]
  - Anxiety [None]
  - Dyspnoea [None]
  - Dry eye [None]
  - Hair texture abnormal [None]
  - Vision blurred [None]
  - Depression [None]
  - Dry skin [None]
  - Mental impairment [None]

NARRATIVE: CASE EVENT DATE: 20160601
